FAERS Safety Report 10855035 (Version 1)
Quarter: 2015Q1

REPORT INFORMATION
  Report Type: Spontaneous
  Country: US (occurrence: US)
  Receive Date: 20150223
  Receipt Date: 20150223
  Transmission Date: 20150721
  Serious: Yes (Other)
  Sender: FDA-Public Use
  Company Number: US-PFIZER INC-2015063083

PATIENT
  Age: 66 Year
  Sex: Male
  Weight: 106 kg

DRUGS (15)
  1. NAMENDA [Concomitant]
     Active Substance: MEMANTINE HYDROCHLORIDE
     Dosage: 5 MG, DAILY
  2. ALPRAZOLAM. [Concomitant]
     Active Substance: ALPRAZOLAM
     Dosage: 1 MG, AS NEEDED3 TIMES A DAY
  3. ACETYLSALICYLIC ACID [Concomitant]
     Active Substance: ASPIRIN
     Dosage: 81 MG, DAILY
  4. LISINOPRIL. [Concomitant]
     Active Substance: LISINOPRIL
     Dosage: 10 MG, DAILY
  5. DEPAKOTE [Concomitant]
     Active Substance: DIVALPROEX SODIUM
     Dosage: 500 MG, 2X/DAY
  6. GLIPIZIDE. [Concomitant]
     Active Substance: GLIPIZIDE
     Dosage: 5 MG, 2X/DAY
  7. SIMVASTATIN. [Concomitant]
     Active Substance: SIMVASTATIN
     Dosage: 20 MG, DAILY
  8. LYRICA [Suspect]
     Active Substance: PREGABALIN
     Dosage: 300 MG, 2X/DAY
  9. OXYGEN. [Concomitant]
     Active Substance: OXYGEN
  10. OXYCODONE [Concomitant]
     Active Substance: OXYCODONE
     Dosage: 15 MG, AS NEEDED-4X/DAY
  11. LYRICA [Suspect]
     Active Substance: PREGABALIN
     Indication: NEUROPATHY PERIPHERAL
     Dosage: 600 MG, 2X/DAY
  12. ALBUTEROL. [Concomitant]
     Active Substance: ALBUTEROL
  13. METFORMIN [Concomitant]
     Active Substance: METFORMIN HYDROCHLORIDE
     Dosage: 500 MG, 2X/DAY
  14. ARICEPT [Concomitant]
     Active Substance: DONEPEZIL HYDROCHLORIDE
     Dosage: 25 MG, DAILY
  15. METOPROLOL [Concomitant]
     Active Substance: METOPROLOL
     Dosage: 25 MG, DAILY

REACTIONS (16)
  - Dyspnoea [Unknown]
  - Dysphagia [Not Recovered/Not Resolved]
  - Balance disorder [Not Recovered/Not Resolved]
  - Dementia with Lewy bodies [Unknown]
  - Aphasia [Not Recovered/Not Resolved]
  - Chronic obstructive pulmonary disease [Not Recovered/Not Resolved]
  - Parkinson^s disease [Unknown]
  - Memory impairment [Unknown]
  - Disorientation [Unknown]
  - Skin cancer [Not Recovered/Not Resolved]
  - Back disorder [Recovered/Resolved]
  - Delayed recovery from anaesthesia [Recovered/Resolved]
  - Tremor [Not Recovered/Not Resolved]
  - Vascular dementia [Not Recovered/Not Resolved]
  - Gait disturbance [Not Recovered/Not Resolved]
  - Prescribed overdose [Unknown]

NARRATIVE: CASE EVENT DATE: 2007
